FAERS Safety Report 7271655-1 (Version None)
Quarter: 2011Q1

REPORT INFORMATION
  Report Type: 
  Country: None (occurrence: None)
  Receive Date: 20110203
  Receipt Date: 20110131
  Transmission Date: 20110831
  Serious: No
  Sender: FDA-Public Use
  Company Number: US-JNJFOC-20110200683

PATIENT
  Sex: Female
  Weight: 70.31 kg

DRUGS (1)
  1. FENTANYL-100 [Suspect]
     Indication: ABDOMINAL PAIN
     Dosage: NDC: 0781-7243-55
     Route: 062

REACTIONS (2)
  - WRONG TECHNIQUE IN DRUG USAGE PROCESS [None]
  - PRODUCT ADHESION ISSUE [None]
